FAERS Safety Report 17673411 (Version 1)
Quarter: 2020Q2

REPORT INFORMATION
  Report Type: Spontaneous
  Country: CA (occurrence: CA)
  Receive Date: 20200415
  Receipt Date: 20200415
  Transmission Date: 20200713
  Serious: Yes (Other)
  Sender: FDA-Public Use
  Company Number: NVSC2020CA101010

PATIENT
  Age: 82 Year
  Sex: Male
  Weight: 72 kg

DRUGS (1)
  1. ENTRESTO [Suspect]
     Active Substance: SACUBITRIL\VALSARTAN
     Indication: CARDIAC FAILURE
     Dosage: 2 OT, QD
     Route: 048

REACTIONS (3)
  - Muscular weakness [Recovered/Resolved]
  - Cardiac failure acute [Recovered/Resolved]
  - Dyspnoea [Recovered/Resolved]
